FAERS Safety Report 9468834 (Version 2)
Quarter: 2014Q2

REPORT INFORMATION
  Report Type: Spontaneous
  Country: US (occurrence: US)
  Receive Date: 20130821
  Receipt Date: 20140620
  Transmission Date: 20141212
  Serious: Yes (Hospitalization, Other)
  Sender: FDA-Public Use
  Company Number: US-009507513-1308USA009535

PATIENT
  Sex: Female

DRUGS (1)
  1. NUVARING [Suspect]
     Indication: CONTRACEPTION
     Dosage: UNK
     Route: 067
     Dates: start: 201101

REACTIONS (9)
  - Convulsion [Unknown]
  - Cerebral venous thrombosis [Not Recovered/Not Resolved]
  - Temporomandibular joint syndrome [Unknown]
  - Acute respiratory failure [Unknown]
  - Pyrexia [Unknown]
  - Cholelithiasis [Unknown]
  - Anaemia [Unknown]
  - Menstruation irregular [Unknown]
  - Encephalopathy [Unknown]
